FAERS Safety Report 21413397 (Version 1)
Quarter: 2022Q4

REPORT INFORMATION
  Report Type: Spontaneous
  Country: GB (occurrence: GB)
  Receive Date: 20221006
  Receipt Date: 20221006
  Transmission Date: 20230113
  Serious: Yes (Other)
  Sender: FDA-Public Use
  Company Number: GB-MHRA-MED-202209220743454910-SKVBC

PATIENT
  Age: 57 Year
  Sex: Male

DRUGS (2)
  1. EMTRICITABINE\TENOFOVIR [Suspect]
     Active Substance: EMTRICITABINE\TENOFOVIR
     Indication: Adverse drug reaction
     Dosage: 2 DOSAGE FORM
     Route: 065
     Dates: start: 20220820, end: 20220921
  2. EMTRICITABINE\TENOFOVIR [Suspect]
     Active Substance: EMTRICITABINE\TENOFOVIR
     Dosage: 2 DOSAGE FORM
     Dates: start: 20220920, end: 20220921

REACTIONS (2)
  - Pain in extremity [Recovered/Resolved]
  - Contusion [Recovering/Resolving]
